FAERS Safety Report 11164696 (Version 2)
Quarter: 2015Q3

REPORT INFORMATION
  Report Type: Spontaneous
  Country: US (occurrence: US)
  Receive Date: 20150604
  Receipt Date: 20150729
  Transmission Date: 20151125
  Serious: No
  Sender: FDA-Public Use
  Company Number: US-BAYER-2015-301970

PATIENT
  Age: 24 Year
  Sex: Female

DRUGS (4)
  1. ZYRTEK [Concomitant]
     Active Substance: CETIRIZINE HYDROCHLORIDE
  2. MIRENA [Suspect]
     Active Substance: LEVONORGESTREL
     Indication: CONTRACEPTION
     Dosage: 20 MCG/24HR, CONT
     Route: 015
     Dates: start: 20150601, end: 20150601
  3. ZANTAC [Concomitant]
     Active Substance: RANITIDINE HYDROCHLORIDE
  4. SPRINTEC [Concomitant]
     Active Substance: ETHINYL ESTRADIOL\NORGESTIMATE

REACTIONS (4)
  - Presyncope [None]
  - Device difficult to use [None]
  - Dizziness [None]
  - Complication of device insertion [None]

NARRATIVE: CASE EVENT DATE: 20150601
